FAERS Safety Report 8200443-4 (Version None)
Quarter: 2012Q1

REPORT INFORMATION
  Report Type: 
  Country: None (occurrence: None)
  Receive Date: 20120227
  Receipt Date: 20120222
  Transmission Date: 20120608
  Serious: Yes (Life-Threatening)
  Sender: FDA-Public Use
  Company Number: 2012031283

PATIENT
  Sex: Female

DRUGS (1)
  1. PRIVIGEN [Suspect]

REACTIONS (1)
  - RESPIRATORY ARREST [None]
